FAERS Safety Report 21312527 (Version 1)
Quarter: 2022Q3

REPORT INFORMATION
  Report Type: Spontaneous
  Country: US (occurrence: None)
  Receive Date: 20220909
  Receipt Date: 20220909
  Transmission Date: 20221027
  Serious: No
  Sender: FDA-Public Use
  Company Number: US-ARIS GLOBAL-202206-1181

PATIENT
  Sex: Female
  Weight: 46.308 kg

DRUGS (6)
  1. OXERVATE [Suspect]
     Active Substance: CENEGERMIN-BKBJ
     Indication: Neurotrophic keratopathy
     Route: 047
     Dates: start: 20220613
  2. KETOROLAC TROMETHAMINE [Concomitant]
     Active Substance: KETOROLAC TROMETHAMINE
  3. OFLOXACIN [Concomitant]
     Active Substance: OFLOXACIN
  4. ASCORBIC ACID [Concomitant]
     Active Substance: ASCORBIC ACID
  5. METRONIDAZOLE [Concomitant]
     Active Substance: METRONIDAZOLE
  6. PREDNISONE [Concomitant]
     Active Substance: PREDNISONE

REACTIONS (1)
  - Eye disorder [Unknown]
